FAERS Safety Report 9278885 (Version 1)
Quarter: 2013Q2

REPORT INFORMATION
  Report Type: Report from Study
  Country: GB (occurrence: GB)
  Receive Date: 20130508
  Receipt Date: 20130508
  Transmission Date: 20140414
  Serious: Yes (Death)
  Sender: FDA-Public Use
  Company Number: GB-AMGEN-GBRCT2013031327

PATIENT
  Age: 65 Year
  Sex: Female
  Weight: 64 kg

DRUGS (15)
  1. ETANERCEPT [Suspect]
     Indication: RHEUMATOID ARTHRITIS
     Dosage: 25 MG, 2 TIMES/WK
     Dates: start: 20070914, end: 20090417
  2. CELEBREX [Concomitant]
     Dosage: UNK
     Route: 065
  3. CYCLIZINE [Concomitant]
     Dosage: UNK
     Route: 065
  4. CALCORT [Concomitant]
     Dosage: UNK
     Route: 065
  5. DIAZEPAM [Concomitant]
     Dosage: UNK
     Route: 065
  6. FOLIC ACID [Concomitant]
     Dosage: UNK
     Route: 065
  7. GOLD [Concomitant]
     Dosage: UNK
     Route: 065
     Dates: start: 20090417
  8. LISINOPRIL [Concomitant]
     Dosage: UNK
     Route: 065
  9. METHOTREXATE [Concomitant]
     Dosage: UNK
     Route: 065
     Dates: start: 20060929
  10. LOSEC                              /00661201/ [Concomitant]
     Dosage: UNK
     Route: 065
  11. OXYCODONE [Concomitant]
     Dosage: UNK
     Route: 065
  12. OXYCODONE HYDROCHLORIDE [Concomitant]
     Dosage: UNK
     Route: 065
  13. SULFASALAZINE [Concomitant]
     Dosage: UNK
     Route: 065
     Dates: start: 20090417
  14. TOLTERODINE L-TARTRATE [Concomitant]
     Dosage: UNK
     Route: 065
  15. TRAMADOL [Concomitant]
     Dosage: UNK
     Route: 065

REACTIONS (4)
  - Cerebrovascular accident [Fatal]
  - Aortic valve disease [Fatal]
  - Bronchiectasis [Fatal]
  - H1N1 influenza [Fatal]
